FAERS Safety Report 5308467-1 (Version None)
Quarter: 2007Q2

REPORT INFORMATION
  Report Type: 
  Country: None (occurrence: None)
  Receive Date: 20070423
  Receipt Date: 20070301
  Transmission Date: 20071010
  Serious: Yes (Death)
  Sender: FDA-Public Use
  Company Number: 20073722

PATIENT
  Sex: Female

DRUGS (5)
  1. LIORESAL [Suspect]
     Indication: MUSCLE SPASTICITY
     Dosage: UNK MCG, DAILY, INTRATHECAL
     Route: 037
  2. EFFEXOR [Concomitant]
  3. FENTANYL [Concomitant]
  4. CLONIDINE [Concomitant]
  5. PRIALT [Concomitant]

REACTIONS (2)
  - CATHETER RELATED COMPLICATION [None]
  - EMOTIONAL DISORDER [None]
